FAERS Safety Report 18879602 (Version 2)
Quarter: 2021Q2

REPORT INFORMATION
  Report Type: Report from Study
  Country: US (occurrence: US)
  Receive Date: 20210211
  Receipt Date: 20210427
  Transmission Date: 20210717
  Serious: Yes (Other)
  Sender: FDA-Public Use
  Company Number: US-BIOVITRUM-2020US1809

PATIENT
  Age: 50 Year
  Sex: Female

DRUGS (1)
  1. KINERET [Suspect]
     Active Substance: ANAKINRA
     Indication: PERICARDITIS
     Route: 058
     Dates: start: 20200407

REACTIONS (22)
  - Haemorrhage [Unknown]
  - Blood pressure increased [Unknown]
  - Off label use [Unknown]
  - Vitamin D decreased [Unknown]
  - Blood potassium decreased [Unknown]
  - Blood cholesterol increased [Unknown]
  - Hypotension [Unknown]
  - Abdominal pain upper [Unknown]
  - Drug hypersensitivity [Unknown]
  - COVID-19 [Unknown]
  - Contusion [Unknown]
  - Chest discomfort [Recovered/Resolved]
  - Atrial fibrillation [Unknown]
  - Feeling abnormal [Unknown]
  - Insomnia [Unknown]
  - Headache [Recovered/Resolved]
  - Unevaluable event [Unknown]
  - Fatigue [Unknown]
  - Product dose omission issue [Unknown]
  - Tongue disorder [Unknown]
  - Candida infection [Not Recovered/Not Resolved]
  - Injection site pain [Unknown]

NARRATIVE: CASE EVENT DATE: 20200407
